FAERS Safety Report 8431457-7 (Version None)
Quarter: 2012Q2

REPORT INFORMATION
  Report Type: 
  Country: None (occurrence: None)
  Receive Date: 20120607
  Receipt Date: 20120607
  Transmission Date: 20120825
  Serious: Yes (Hospitalization)
  Sender: FDA-Public Use
  Company Number: None

PATIENT
  Age: 41 Year
  Sex: Female
  Weight: 72.5755 kg

DRUGS (1)
  1. CELEXA [Suspect]
     Indication: DEPRESSION
     Dosage: 20MG 1 Q DAY MORNING
     Dates: start: 20100402, end: 20120405

REACTIONS (22)
  - HYPERHIDROSIS [None]
  - VOMITING [None]
  - PARAESTHESIA [None]
  - ABDOMINAL PAIN UPPER [None]
  - HYPERTENSION [None]
  - TRANSIENT ISCHAEMIC ATTACK [None]
  - ANXIETY [None]
  - BURNING SENSATION [None]
  - DIZZINESS [None]
  - HEART RATE INCREASED [None]
  - FEELING COLD [None]
  - CONVULSION [None]
  - HEART RATE IRREGULAR [None]
  - PANIC ATTACK [None]
  - CONDITION AGGRAVATED [None]
  - HYPOAESTHESIA [None]
  - DRY MOUTH [None]
  - DECREASED APPETITE [None]
  - RESTLESSNESS [None]
  - DIARRHOEA [None]
  - NAUSEA [None]
  - TREMOR [None]
